FAERS Safety Report 9441154 (Version 2)
Quarter: 2013Q3

REPORT INFORMATION
  Report Type: Report from Study
  Country: HU (occurrence: HU)
  Receive Date: 20130805
  Receipt Date: 20130916
  Transmission Date: 20140515
  Serious: Yes (Other)
  Sender: FDA-Public Use
  Company Number: HU-GLAXOSMITHKLINE-B0913069A

PATIENT
  Age: 34 Year
  Sex: Female

DRUGS (1)
  1. SERETIDE (50MCG/500MCG) [Suspect]
     Indication: ASTHMA
     Dosage: 1PUFF TWICE PER DAY
     Route: 055
     Dates: start: 201209, end: 201307

REACTIONS (2)
  - Angina pectoris [Recovered/Resolved]
  - Headache [Recovered/Resolved]
